FAERS Safety Report 7540520-4 (Version None)
Quarter: 2011Q2

REPORT INFORMATION
  Report Type: 
  Country: None (occurrence: None)
  Receive Date: 20110610
  Receipt Date: 20110603
  Transmission Date: 20111010
  Serious: Yes (Other)
  Sender: FDA-Public Use
  Company Number: A0930867A

PATIENT
  Age: 19 Year
  Sex: Male
  Weight: 69.3 kg

DRUGS (1)
  1. PAZOPANIB [Suspect]
     Indication: NEOPLASM
     Dosage: 160MGM2 PER DAY
     Route: 048
     Dates: start: 20110223

REACTIONS (1)
  - BLOOD AMYLASE INCREASED [None]
